FAERS Safety Report 8100711-0 (Version None)
Quarter: 2012Q1

REPORT INFORMATION
  Report Type: 
  Country: None (occurrence: None)
  Receive Date: 20120129
  Receipt Date: 20111108
  Transmission Date: 20120608
  Serious: No
  Sender: FDA-Public Use
  Company Number: US-ABBOTT-11P-163-0872073-00

PATIENT
  Sex: Female

DRUGS (7)
  1. HUMIRA [Suspect]
     Indication: RHEUMATOID ARTHRITIS
     Route: 058
     Dates: start: 20080101
  2. PREDNISONE TAB [Concomitant]
     Indication: RHEUMATOID ARTHRITIS
  3. VENTOLIN [Concomitant]
     Indication: ASTHMA
     Dosage: NEBULIZER EVERY 4-6 HOURS
  4. METHOTREXATE [Concomitant]
     Indication: RHEUMATOID ARTHRITIS
     Dosage: EIGHT TABS ON FRIDAY ONLY
  5. FOLIC ACID [Concomitant]
     Indication: RHEUMATOID ARTHRITIS
  6. QVAR 40 [Concomitant]
     Indication: ASTHMA
  7. VENTOLIN [Concomitant]
     Dosage: EVERY 4-6 HRS

REACTIONS (4)
  - OROPHARYNGEAL PAIN [None]
  - COUGH [None]
  - SNEEZING [None]
  - NASOPHARYNGITIS [None]
